FAERS Safety Report 9321837 (Version 1)
Quarter: 2013Q2

REPORT INFORMATION
  Report Type: Report from Study
  Country: US (occurrence: US)
  Receive Date: 20130531
  Receipt Date: 20130531
  Transmission Date: 20140414
  Serious: No
  Sender: FDA-Public Use
  Company Number: US-ABBOTT-12P-163-1017975-00

PATIENT
  Sex: Male
  Weight: 59.02 kg

DRUGS (11)
  1. MARINOL [Suspect]
     Indication: DECREASED APPETITE
     Dates: start: 201110
  2. MARINOL [Suspect]
     Dates: start: 201211, end: 20121203
  3. MARINOL [Suspect]
     Dates: start: 20121204
  4. MEGACE [Suspect]
     Indication: DECREASED APPETITE
     Dates: start: 2011
  5. CLONAZEPAM [Concomitant]
     Indication: MENTAL DISORDER
  6. FLUTICASONE [Concomitant]
     Indication: NASAL CONGESTION
  7. CENTRUM SILVER [Concomitant]
     Indication: VITAMIN SUPPLEMENTATION
  8. LORATADINE [Concomitant]
     Indication: HYPERSENSITIVITY
  9. TRAZODONE [Concomitant]
     Indication: DEPRESSION
  10. OMEPRAZOLE [Concomitant]
     Indication: GASTROOESOPHAGEAL REFLUX DISEASE
  11. ENSURE [Concomitant]
     Indication: WEIGHT DECREASED

REACTIONS (3)
  - Weight decreased [Not Recovered/Not Resolved]
  - Asthenia [Not Recovered/Not Resolved]
  - Drug ineffective [Not Recovered/Not Resolved]
